FAERS Safety Report 25242061 (Version 1)
Quarter: 2025Q2

REPORT INFORMATION
  Report Type: Spontaneous
  Country: ES (occurrence: ES)
  Receive Date: 20250426
  Receipt Date: 20250426
  Transmission Date: 20250717
  Serious: Yes (Death, Hospitalization)
  Sender: ACCORD
  Company Number: None

PATIENT
  Age: 78 Year
  Sex: Male

DRUGS (4)
  1. CARBOPLATIN [Suspect]
     Active Substance: CARBOPLATIN
     Indication: Small cell lung cancer extensive stage
     Dosage: 217MG EVERY 3 WEEKS
     Dates: start: 20250107, end: 20250225
  2. ETOPOSIDE [Suspect]
     Active Substance: ETOPOSIDE
     Indication: Small cell lung cancer extensive stage
     Dosage: 20 MG/ML CONCENTRATE FOR SOLUTION FOR INFUSION EFG, 1 VIAL OF 50 ML?131MG EVERY 3 WEEKS
     Dates: start: 20250107, end: 20250225
  3. VEPESID [Suspect]
     Active Substance: ETOPOSIDE
     Indication: Small cell lung cancer extensive stage
     Dates: start: 20250107, end: 20250225
  4. ATEZOLIZUMAB [Suspect]
     Active Substance: ATEZOLIZUMAB
     Indication: Small cell lung cancer extensive stage
     Dosage: 1200MG EVERY 3 WEEKS
     Dates: start: 20250107, end: 20250225

REACTIONS (1)
  - Neutropenic sepsis [Fatal]

NARRATIVE: CASE EVENT DATE: 20250307
